FAERS Safety Report 4916769-3 (Version None)
Quarter: 2006Q1

REPORT INFORMATION
  Report Type: 
  Country: None (occurrence: None)
  Receive Date: 20060220
  Receipt Date: 20060126
  Transmission Date: 20060701
  Serious: Yes (Other)
  Sender: FDA-Public Use
  Company Number: US-ROCHE-434355

PATIENT
  Age: 28 Year
  Sex: Female

DRUGS (3)
  1. ACCUTANE [Suspect]
     Indication: ACNE
     Dosage: IT WAS REPORTED THAT SHE RECEIVED SOME ISOTRETINOIN (ACCUTANE) AND SOME GENERIC ISOTRETINOIN (CLARA+
     Route: 048
     Dates: start: 20050320, end: 20050626
  2. CLARAVIS [Suspect]
     Indication: ACNE
     Dosage: IT WAS REPORTED THAT SHE RECEIVED SOME ISOTRETINOIN (ACCUTANE) AND SOME GENERIC ISOTRETINOIN (CLARA+
     Route: 065
     Dates: start: 20050320, end: 20050625
  3. YASMIN [Concomitant]
     Route: 048

REACTIONS (3)
  - DRUG EXPOSURE DURING PREGNANCY [None]
  - NO ADVERSE EFFECT [None]
  - PREGNANCY [None]
